FAERS Safety Report 25576559 (Version 1)
Quarter: 2025Q3

REPORT INFORMATION
  Report Type: Spontaneous
  Country: US (occurrence: None)
  Receive Date: 20250717
  Receipt Date: 20250717
  Transmission Date: 20251021
  Serious: Yes (Death)
  Sender: FDA-CTU
  Company Number: None

PATIENT
  Age: 65 Year
  Sex: Male
  Weight: 88.63 kg

DRUGS (8)
  1. STELARA [Suspect]
     Active Substance: USTEKINUMAB
     Indication: Crohn^s disease
     Route: 058
     Dates: start: 2020, end: 20250701
  2. cholestyramine 4 gm packets [Concomitant]
  3. Creon 3000 unit capsules [Concomitant]
  4. Floranex tablets [Concomitant]
  5. MELATONIN [Concomitant]
     Active Substance: MELATONIN
  6. VITAMINS [Concomitant]
     Active Substance: VITAMINS
  7. morphine sulfate 100mg/5ml [Concomitant]
  8. lorazepam 0.5mg tablet [Concomitant]

REACTIONS (1)
  - Cholangiocarcinoma [None]

NARRATIVE: CASE EVENT DATE: 20250701
